FAERS Safety Report 9688919 (Version 2)
Quarter: 2014Q1

REPORT INFORMATION
  Report Type: Spontaneous
  Country: IT (occurrence: None)
  Receive Date: 20131112
  Receipt Date: 20140108
  Transmission Date: 20141002
  Serious: Yes (Hospitalization)
  Sender: FDA-Public Use
  Company Number: 2013MPI00689

PATIENT
  Age: 29 Year
  Sex: Male
  Weight: 108 kg

DRUGS (6)
  1. BRENTUXIMAB VEDOTIN [Suspect]
     Indication: GERM CELL CANCER
     Route: 042
     Dates: start: 20130717, end: 20131011
  2. ATENOLOL (ATENOLOL) [Concomitant]
  3. METFORMIN (METFORMIN HYDROCHLORIDE) [Concomitant]
  4. TORADOL (KETOROLAC TROMETHAMINE) [Concomitant]
  5. PARACETAMOL (PARACETAMOL) [Concomitant]
  6. MORPHINE (MORPHINE HYDROCHLORIDE) [Concomitant]

REACTIONS (1)
  - Cerebrovascular accident [None]
